FAERS Safety Report 15554188 (Version 1)
Quarter: 2018Q4

REPORT INFORMATION
  Report Type: Spontaneous
  Country: US (occurrence: US)
  Receive Date: 20181025
  Receipt Date: 20181025
  Transmission Date: 20190205
  Serious: No
  Sender: FDA-Public Use
  Company Number: None

PATIENT
  Age: 11 Year
  Sex: Male
  Weight: 60.75 kg

DRUGS (2)
  1. RISPERDONE [Concomitant]
     Active Substance: RISPERIDONE
  2. METHYLPHENIDATE ER 54 MG TAB [Suspect]
     Active Substance: METHYLPHENIDATE HYDROCHLORIDE
     Indication: ATTENTION DEFICIT/HYPERACTIVITY DISORDER
     Dosage: ?          QUANTITY:1 TABLET(S);?
     Route: 048
     Dates: start: 20180401, end: 20181015

REACTIONS (4)
  - Suicide threat [None]
  - Self-injurious ideation [None]
  - Aggression [None]
  - Product substitution issue [None]

NARRATIVE: CASE EVENT DATE: 20181015
